FAERS Safety Report 7488693-6 (Version None)
Quarter: 2011Q2

REPORT INFORMATION
  Report Type: 
  Country: None (occurrence: None)
  Receive Date: 20110518
  Receipt Date: 20110513
  Transmission Date: 20111010
  Serious: Yes (Death, Hospitalization)
  Sender: FDA-Public Use
  Company Number: B0719532A

PATIENT
  Age: 74 Year
  Sex: Male

DRUGS (1)
  1. AVANDAMET [Suspect]
     Route: 048
     Dates: start: 20090701, end: 20100301

REACTIONS (2)
  - CARDIAC ARREST [None]
  - MYOCARDIAL INFARCTION [None]
